FAERS Safety Report 11695777 (Version 1)
Quarter: 2015Q4

REPORT INFORMATION
  Report Type: Spontaneous
  Country: GB (occurrence: GB)
  Receive Date: 20151104
  Receipt Date: 20151104
  Transmission Date: 20160304
  Serious: Yes (Other)
  Sender: FDA-Public Use
  Company Number: GB-TEVA-604899ACC

PATIENT
  Age: 33 Year
  Sex: Male
  Weight: 70 kg

DRUGS (1)
  1. OFLOXACIN. [Suspect]
     Active Substance: OFLOXACIN
     Indication: ORCHITIS
     Dosage: 800 MILLIGRAM DAILY;
     Route: 048
     Dates: start: 20151005, end: 20151014

REACTIONS (4)
  - Paraesthesia [Recovering/Resolving]
  - Joint swelling [Recovering/Resolving]
  - Impaired work ability [Unknown]
  - Peripheral swelling [Recovering/Resolving]

NARRATIVE: CASE EVENT DATE: 20151005
